FAERS Safety Report 8503633-6 (Version None)
Quarter: 2012Q3

REPORT INFORMATION
  Report Type: 
  Country: None (occurrence: None)
  Receive Date: 20120711
  Receipt Date: 20120627
  Transmission Date: 20120928
  Serious: Yes (Life-Threatening, Hospitalization)
  Sender: FDA-Public Use
  Company Number: GB-WATSON-2012-11443

PATIENT
  Age: 27 Year
  Sex: Male

DRUGS (6)
  1. VITAMIN B COMPLEX CAP [Concomitant]
     Indication: PRODUCT USED FOR UNKNOWN INDICATION
     Dosage: UNK
     Route: 048
     Dates: start: 20120403
  2. THIAMINE [Concomitant]
     Indication: PRODUCT USED FOR UNKNOWN INDICATION
     Dosage: 100 MG, BID
     Route: 048
     Dates: start: 20120403
  3. HALOPERIDOL [Suspect]
     Indication: PSYCHOTIC DISORDER
     Dosage: 5 MG, TID
     Route: 048
     Dates: start: 20120403, end: 20120416
  4. LORAZEPAM [Concomitant]
     Indication: PRODUCT USED FOR UNKNOWN INDICATION
     Dosage: ONE OR TWO AS NECESSARY
     Route: 048
     Dates: start: 20120403
  5. CHLORDIAZEPOXIDE [Concomitant]
     Indication: PRODUCT USED FOR UNKNOWN INDICATION
     Dosage: DETOX REGIMEN
     Route: 048
     Dates: start: 20120404
  6. QUETIAPINE [Suspect]
     Indication: PSYCHOTIC DISORDER
     Dosage: 100 MG, BID
     Route: 048
     Dates: start: 20120403, end: 20120416

REACTIONS (9)
  - TACHYCARDIA [None]
  - NEUROLEPTIC MALIGNANT SYNDROME [None]
  - HYPERHIDROSIS [None]
  - JOINT STIFFNESS [None]
  - URINARY RETENTION [None]
  - HYPERTENSION [None]
  - OCULOGYRIC CRISIS [None]
  - TREMOR [None]
  - PRURITUS [None]
